FAERS Safety Report 20179642 (Version 2)
Quarter: 2022Q1

REPORT INFORMATION
  Report Type: Spontaneous
  Country: US (occurrence: US)
  Receive Date: 20211214
  Receipt Date: 20220126
  Transmission Date: 20220423
  Serious: Yes (Other)
  Sender: FDA-Public Use
  Company Number: US-CELLTRION INC.-2021US016875

PATIENT

DRUGS (7)
  1. INFLIXIMAB [Suspect]
     Active Substance: INFLIXIMAB
     Indication: Crohn^s disease
     Dosage: INDUCTION THERAPY
  2. INFLIXIMAB [Suspect]
     Active Substance: INFLIXIMAB
     Dosage: MAINTENANCE THERAPY
  3. UCERIS [Suspect]
     Active Substance: BUDESONIDE
     Indication: Crohn^s disease
     Dosage: IN COMBINATION WITH INFLIXIMAB
  4. TOFACITINIB CITRATE [Suspect]
     Active Substance: TOFACITINIB CITRATE
     Indication: Crohn^s disease
     Dosage: 10 MG, BID
     Route: 065
  5. TOFACITINIB CITRATE [Suspect]
     Active Substance: TOFACITINIB CITRATE
     Indication: Colitis
  6. VANCOMYCIN HYDROCHLORIDE [Suspect]
     Active Substance: VANCOMYCIN HYDROCHLORIDE
     Indication: Crohn^s disease
     Dosage: C DIFF RELATED
     Route: 048
  7. VANCOMYCIN HYDROCHLORIDE [Suspect]
     Active Substance: VANCOMYCIN HYDROCHLORIDE
     Indication: Colitis

REACTIONS (7)
  - Colitis [Recovered/Resolved]
  - Colon dysplasia [Recovered/Resolved]
  - Clostridium difficile infection [Recovered/Resolved]
  - Frequent bowel movements [Unknown]
  - Enteritis [Unknown]
  - Disease progression [Recovering/Resolving]
  - Drug ineffective [Unknown]
